FAERS Safety Report 9407720 (Version 1)
Quarter: 2013Q3

REPORT INFORMATION
  Report Type: Spontaneous
  Country: US (occurrence: None)
  Receive Date: 20130717
  Receipt Date: 20130717
  Transmission Date: 20140515
  Serious: Yes (Hospitalization)
  Sender: FDA-Public Use
  Company Number: None

PATIENT
  Age: 61 Year
  Sex: Male
  Weight: 75.8 kg

DRUGS (3)
  1. WARFARIN [Suspect]
     Indication: PULMONARY EMBOLISM
     Dosage: MG EVERY DAY PO
     Route: 048
     Dates: end: 20130704
  2. WARFARIN [Suspect]
     Indication: DEEP VEIN THROMBOSIS
     Dosage: MG EVERY DAY PO
     Route: 048
     Dates: end: 20130704
  3. MELOXICAM [Suspect]
     Dosage: MG  PO
     Route: 048
     Dates: start: 20130625, end: 20130704

REACTIONS (4)
  - Haemorrhage [None]
  - International normalised ratio increased [None]
  - Haemoptysis [None]
  - Faeces discoloured [None]
